FAERS Safety Report 6143072-9 (Version None)
Quarter: 2009Q2

REPORT INFORMATION
  Report Type: 
  Country: None (occurrence: None)
  Receive Date: 20090403
  Receipt Date: 20090324
  Transmission Date: 20091009
  Serious: No
  Sender: FDA-Public Use
  Company Number: JP-SANOFI-SYNTHELABO-F01200900035

PATIENT
  Sex: Male
  Weight: 50 kg

DRUGS (6)
  1. STAYBLA [Concomitant]
     Route: 048
     Dates: start: 20070821
  2. URIEF [Concomitant]
     Route: 048
     Dates: start: 20070821
  3. KINEDAK [Concomitant]
     Route: 048
     Dates: start: 20070821
  4. BASEN [Concomitant]
     Indication: DIABETES MELLITUS
     Route: 048
     Dates: start: 20070409
  5. OLMETEC [Concomitant]
     Indication: HYPERTENSION
     Dosage: 20 MG
     Route: 048
     Dates: start: 20070409
  6. CLOPIDOGREL [Suspect]
     Indication: LACUNAR INFARCTION
     Dosage: 75 MG
     Route: 048
     Dates: start: 20070821

REACTIONS (1)
  - DIABETIC NEPHROPATHY [None]
